FAERS Safety Report 6837037-9 (Version None)
Quarter: 2010Q3

REPORT INFORMATION
  Report Type: 
  Country: None (occurrence: None)
  Receive Date: 20100713
  Receipt Date: 20070827
  Transmission Date: 20110219
  Serious: No
  Sender: FDA-Public Use
  Company Number: US-PFIZER INC-2007035361

PATIENT
  Sex: Female
  Weight: 62.7 kg

DRUGS (5)
  1. CHANTIX [Suspect]
     Indication: SMOKING CESSATION THERAPY
     Dates: start: 20070307
  2. OTHER HYPNOTICS AND SEDATIVES [Concomitant]
  3. DRUG, UNSPECIFIED [Concomitant]
     Indication: TREMOR
  4. ANXIOLYTICS [Concomitant]
     Indication: ANXIETY
  5. DRUG, UNSPECIFIED [Concomitant]
     Indication: RESTLESSNESS

REACTIONS (2)
  - COORDINATION ABNORMAL [None]
  - NAUSEA [None]
